FAERS Safety Report 25756566 (Version 3)
Quarter: 2025Q4

REPORT INFORMATION
  Report Type: Report from Study
  Country: US (occurrence: US)
  Receive Date: 20250903
  Receipt Date: 20251030
  Transmission Date: 20260118
  Serious: Yes (Hospitalization, Other)
  Sender: OTSUKA
  Company Number: US-OTSUKA-2024_033233

PATIENT
  Age: 66 Year
  Sex: Male
  Weight: 111 kg

DRUGS (9)
  1. TOLVAPTAN [Suspect]
     Active Substance: TOLVAPTAN
     Indication: Congenital cystic kidney disease
     Dosage: UNK
     Route: 065
  2. TOLVAPTAN [Suspect]
     Active Substance: TOLVAPTAN
     Dosage: UNK
     Route: 065
  3. TOLVAPTAN [Suspect]
     Active Substance: TOLVAPTAN
     Dosage: 30 MG, QD (IN THE MORNING)
     Route: 065
     Dates: start: 202508
  4. TOLVAPTAN [Suspect]
     Active Substance: TOLVAPTAN
     Dosage: 15 MG, QD (IN THE AFTERNOON)
     Route: 065
     Dates: start: 202508
  5. COREG [Concomitant]
     Active Substance: CARVEDILOL
     Indication: Hypertension
     Route: 065
  6. DOXAZOSIN MESYLATE [Concomitant]
     Active Substance: DOXAZOSIN MESYLATE
     Indication: Hypertension
     Dosage: UNK
     Route: 065
  7. IRON [Concomitant]
     Active Substance: IRON
     Indication: Nephrogenic anaemia
     Dosage: UNK, QD
     Route: 065
  8. VITAMIN D3 [Concomitant]
     Active Substance: CHOLECALCIFEROL
     Indication: Hyperparathyroidism secondary
     Dosage: 1000 IU, QD
     Route: 065
  9. LIPITOR [Concomitant]
     Active Substance: ATORVASTATIN CALCIUM
     Indication: Hyperlipidaemia
     Dosage: UNK
     Route: 065

REACTIONS (13)
  - Cardiac failure chronic [Not Recovered/Not Resolved]
  - End stage renal disease [Unknown]
  - Arteriovenous fistula operation [Unknown]
  - Arteriovenous fistula operation [Unknown]
  - Neuropathy peripheral [Unknown]
  - Varicose vein [Unknown]
  - Somnambulism [Unknown]
  - Coronary artery disease [Unknown]
  - Haematoma [Recovering/Resolving]
  - Contusion [Unknown]
  - Nausea [Unknown]
  - Pruritus [Unknown]
  - Thirst [Unknown]

NARRATIVE: CASE EVENT DATE: 20241201
